FAERS Safety Report 8403260-5 (Version None)
Quarter: 2012Q2

REPORT INFORMATION
  Report Type: 
  Country: None (occurrence: None)
  Receive Date: 20120601
  Receipt Date: 20120524
  Transmission Date: 20120825
  Serious: Yes (Other)
  Sender: FDA-Public Use
  Company Number: CA-JNJFOC-20120519062

PATIENT
  Sex: Male
  Weight: 103 kg

DRUGS (7)
  1. ARTHROTEC [Concomitant]
  2. AVODART [Concomitant]
  3. TIAZAC [Concomitant]
  4. METOPROLOL TARTRATE [Concomitant]
  5. RAMIPRIL [Concomitant]
  6. REMICADE [Suspect]
     Indication: RHEUMATOID ARTHRITIS
     Dates: start: 20050101
  7. ASPIRIN [Concomitant]

REACTIONS (1)
  - MALIGNANT MELANOMA [None]
